FAERS Safety Report 9004003 (Version 1)
Quarter: 2013Q1

REPORT INFORMATION
  Report Type: Spontaneous
  Country: MX (occurrence: MX)
  Receive Date: 20130108
  Receipt Date: 20130108
  Transmission Date: 20140127
  Serious: Yes (Other)
  Sender: FDA-Public Use
  Company Number: PHHY2012MX111423

PATIENT
  Sex: 0

DRUGS (6)
  1. DIOVAN [Suspect]
     Indication: HYPERTENSION
     Dosage: 0.5 DF (160 MG), DAILY
     Route: 048
  2. AMIASTEN [Concomitant]
     Indication: HYPERTENSION
     Dosage: 1 DF, UNK
     Dates: start: 2007
  3. OMEPRAZOLE [Concomitant]
     Indication: COLITIS
     Dosage: 1 DF, UNK
     Dates: start: 201212
  4. SELOPRES [Concomitant]
     Indication: TACHYCARDIA
     Dosage: 1 DF, UNK
     Dates: start: 2007
  5. SELOPRES [Concomitant]
     Indication: BLOOD PRESSURE
  6. ANGIOTENSIN CONVERTING ENZYME BLOCKERS [Concomitant]
     Indication: BLOOD PRESSURE
     Dosage: UNK UKN, UNK
     Dates: start: 2004

REACTIONS (5)
  - Kidney infection [Not Recovered/Not Resolved]
  - Uterine inflammation [Not Recovered/Not Resolved]
  - Weight decreased [Recovered/Resolved]
  - Abdominal distension [Recovered/Resolved]
  - Wrong technique in drug usage process [Unknown]
